FAERS Safety Report 20520919 (Version 1)
Quarter: 2022Q1

REPORT INFORMATION
  Report Type: Spontaneous
  Country: US (occurrence: US)
  Receive Date: 20220225
  Receipt Date: 20220225
  Transmission Date: 20220424
  Serious: No
  Sender: FDA-Public Use
  Company Number: US-009507513-2201USA008598

PATIENT
  Age: 43 Year
  Sex: Female

DRUGS (2)
  1. TEMODAR [Suspect]
     Active Substance: TEMOZOLOMIDE
     Indication: Lymphoma
     Dosage: 150 MILLIGRAM/SQ. METER DAILY ONE WEEK ON AND ONE WEEK OFF
  2. RITUXIMAB [Concomitant]
     Active Substance: RITUXIMAB
     Indication: Lymphoma
     Dosage: 750 MILLIGRAM/SQ. METER, QW

REACTIONS (1)
  - Off label use [Unknown]
